FAERS Safety Report 8537418-1 (Version None)
Quarter: 2012Q3

REPORT INFORMATION
  Report Type: 
  Country: None (occurrence: None)
  Receive Date: 20120725
  Receipt Date: 20110818
  Transmission Date: 20120928
  Serious: No
  Sender: FDA-Public Use
  Company Number: US-MYLANLABS-2011S1017517

PATIENT
  Sex: Male

DRUGS (1)
  1. GLYBURIDE [Suspect]

REACTIONS (2)
  - FEELING JITTERY [None]
  - BLOOD GLUCOSE DECREASED [None]
